FAERS Safety Report 23749189 (Version 1)
Quarter: 2024Q2

REPORT INFORMATION
  Report Type: Spontaneous
  Country: US (occurrence: US)
  Receive Date: 20240416
  Receipt Date: 20240416
  Transmission Date: 20240716
  Serious: Yes (Other)
  Sender: FDA-Public Use
  Company Number: US-BRISTOL-MYERS SQUIBB COMPANY-2024-058967

PATIENT
  Age: 77 Year
  Sex: Female
  Weight: 68.95 kg

DRUGS (4)
  1. ELIQUIS [Suspect]
     Active Substance: APIXABAN
     Indication: Atrial fibrillation
     Route: 048
     Dates: start: 202302
  2. ELIQUIS [Suspect]
     Active Substance: APIXABAN
     Route: 048
     Dates: start: 20230212
  3. ELIQUIS [Suspect]
     Active Substance: APIXABAN
     Route: 048
  4. METOPROLOL [Concomitant]
     Active Substance: METOPROLOL
     Indication: Blood pressure measurement

REACTIONS (5)
  - Haemorrhage urinary tract [Not Recovered/Not Resolved]
  - Deafness bilateral [Unknown]
  - Ureteric haemorrhage [Not Recovered/Not Resolved]
  - Off label use [Unknown]
  - Nephrolithiasis [Unknown]

NARRATIVE: CASE EVENT DATE: 20230215
